FAERS Safety Report 5581281-8 (Version None)
Quarter: 2008Q1

REPORT INFORMATION
  Report Type: 
  Country: None (occurrence: None)
  Receive Date: 20080104
  Receipt Date: 20071220
  Transmission Date: 20080703
  Serious: Yes (Hospitalization, Other)
  Sender: FDA-Public Use
  Company Number: US-ELI_LILLY_AND_COMPANY-US200706004419

PATIENT
  Sex: Female

DRUGS (3)
  1. FORTEO [Suspect]
     Indication: FRACTURE
     Dosage: UNK, UNK
     Dates: start: 20060401, end: 20060401
  2. FORTEO [Suspect]
     Dosage: UNK, UNK
     Dates: start: 20070101, end: 20070101
  3. FORTEO [Suspect]
     Dates: start: 20070926

REACTIONS (4)
  - DEVICE RELATED INFECTION [None]
  - FRACTURE NONUNION [None]
  - OSTEOMYELITIS [None]
  - STREPTOCOCCAL INFECTION [None]
